FAERS Safety Report 19417313 (Version 1)
Quarter: 2021Q2

REPORT INFORMATION
  Report Type: Spontaneous
  Country: CN (occurrence: CN)
  Receive Date: 20210614
  Receipt Date: 20210614
  Transmission Date: 20210717
  Serious: Yes (Hospitalization)
  Sender: FDA-Public Use
  Company Number: CN-BAXTER-2021BAX015400

PATIENT
  Age: 72 Year
  Sex: Female

DRUGS (8)
  1. DOCETAXEL. [Suspect]
     Active Substance: DOCETAXEL
     Indication: BREAST CANCER IN SITU
     Dosage: DOCETAXEL  + 5% GLUCOSE, DOSE REINTRODUCED
     Route: 041
  2. DOCETAXEL. [Suspect]
     Active Substance: DOCETAXEL
     Indication: NEOPLASM RECURRENCE
     Dosage: DOCETAXEL 120 MG + 5% GLUCOSE 250 ML
     Route: 041
     Dates: start: 20210518, end: 20210518
  3. ENDOXAN [Suspect]
     Active Substance: CYCLOPHOSPHAMIDE
     Indication: NEOPLASM RECURRENCE
     Dosage: CYCLOPHOSPHAMIDE 0.8G + 0.9 SODIUM CHLORIDE 100ML
     Route: 041
     Dates: start: 20210518, end: 20210518
  4. ENDOXAN [Suspect]
     Active Substance: CYCLOPHOSPHAMIDE
     Indication: BREAST CANCER IN SITU
     Dosage: DOSE REINTRODUCED,  CYCLOPHOSPHAMIDE POWDER INJECTION + 0.9 SODIUM CHLORIDE
     Route: 041
  5. 5% GLUCOSE  INJECTION [Suspect]
     Active Substance: DEXTROSE
     Dosage: DOCETAXEL + 5% GLUCOSE, DOSE REINTRODUCED
     Route: 041
  6. 0.9% SODIUM CHLORIDE INJECTION [Suspect]
     Active Substance: SODIUM CHLORIDE
     Indication: MEDICATION DILUTION
     Dosage: CYCLOPHOSPHAMIDE 0.8G + 0.9 SODIUM CHLORIDE 100ML
     Route: 041
     Dates: start: 20210518, end: 20210518
  7. 0.9% SODIUM CHLORIDE INJECTION [Suspect]
     Active Substance: SODIUM CHLORIDE
     Dosage: CYCLOPHOSPHAMIDE + 0.9 SODIUM CHLORIDE, DOSE REINTRODUCED
     Route: 041
  8. 5% GLUCOSE  INJECTION [Suspect]
     Active Substance: DEXTROSE
     Indication: MEDICATION DILUTION
     Dosage: DOCETAXEL 120 MG + 5% GLUCOSE 250 ML
     Route: 041
     Dates: start: 20210518, end: 20210518

REACTIONS (1)
  - Myelosuppression [Recovering/Resolving]

NARRATIVE: CASE EVENT DATE: 20210522
